FAERS Safety Report 4263115-7 (Version None)
Quarter: 2004Q1

REPORT INFORMATION
  Report Type: 
  Country: None (occurrence: None)
  Receive Date: 20040102
  Receipt Date: 20040102
  Transmission Date: 20041129
  Serious: Yes (Other)
  Sender: FDA-Public Use
  Company Number: None

PATIENT
  Age: 54 Year
  Sex: Male
  Weight: 118.8424 kg

DRUGS (3)
  1. OMNISCAN [Suspect]
     Indication: HYPERTENSION
     Dosage: 20 ML IV X 1 DOSE
     Route: 042
     Dates: start: 20031205
  2. OMNISCAN [Suspect]
     Indication: PHAEOCHROMOCYTOMA
     Dosage: 20 ML IV X 1 DOSE
     Route: 042
     Dates: start: 20031205
  3. MEDRAD SPECTRIS [Concomitant]

REACTIONS (23)
  - ARRHYTHMIA [None]
  - ARTHRALGIA [None]
  - BLOOD PRESSURE INCREASED [None]
  - CHEST PAIN [None]
  - CHROMATURIA [None]
  - CONDITION AGGRAVATED [None]
  - DERMATITIS CONTACT [None]
  - DIZZINESS [None]
  - DYSGEUSIA [None]
  - DYSPNOEA [None]
  - FATIGUE [None]
  - FEELING HOT [None]
  - FLUSHING [None]
  - HEADACHE [None]
  - HEART RATE INCREASED [None]
  - HYPOAESTHESIA [None]
  - HYPOGEUSIA [None]
  - HYPOTENSION [None]
  - MYALGIA [None]
  - NAUSEA [None]
  - PAIN IN EXTREMITY [None]
  - TINNITUS [None]
  - URINE OUTPUT DECREASED [None]
